FAERS Safety Report 6714253-8 (Version None)
Quarter: 2010Q2

REPORT INFORMATION
  Report Type: 
  Country: None (occurrence: None)
  Receive Date: 20100506
  Receipt Date: 20090521
  Transmission Date: 20101027
  Serious: Yes (Other)
  Sender: FDA-Public Use
  Company Number: US-BAUSCH-2009BL002545

PATIENT
  Age: 75 Year
  Sex: Male
  Weight: 86 kg

DRUGS (7)
  1. LOTEMAX [Suspect]
     Indication: EYE PRURITUS
     Route: 047
     Dates: start: 20081023, end: 20081201
  2. LOTEMAX [Suspect]
     Indication: EYE ALLERGY
     Route: 047
     Dates: start: 20081023, end: 20081201
  3. ALBUTEROL [Concomitant]
  4. ATENOLOL [Concomitant]
  5. IBUPROFEN [Concomitant]
  6. METFORMIN [Concomitant]
  7. TERAZOSIN HCL [Concomitant]

REACTIONS (1)
  - KERATITIS HERPETIC [None]
